FAERS Safety Report 7113314-1 (Version None)
Quarter: 2010Q4

REPORT INFORMATION
  Report Type: 
  Country: None (occurrence: None)
  Receive Date: 20101119
  Receipt Date: 20100826
  Transmission Date: 20110411
  Serious: No
  Sender: FDA-Public Use
  Company Number: A0878197A

PATIENT
  Sex: Female

DRUGS (2)
  1. WELLBUTRIN SR [Suspect]
     Dates: start: 20090101
  2. LOVAZA [Suspect]
     Dates: start: 20090101

REACTIONS (2)
  - ARTHRITIS [None]
  - BACK PAIN [None]
